FAERS Safety Report 6958407-4 (Version None)
Quarter: 2010Q3

REPORT INFORMATION
  Report Type: 
  Country: None (occurrence: None)
  Receive Date: 20100831
  Receipt Date: 20100823
  Transmission Date: 20110219
  Serious: Yes (Hospitalization)
  Sender: FDA-Public Use
  Company Number: IN-ROCHE-702908

PATIENT
  Sex: Male

DRUGS (3)
  1. MYCOPHENOLATE MOFETIL [Suspect]
     Route: 065
     Dates: start: 20070517
  2. BELATACEPT [Suspect]
     Dosage: FORM AS PER PROTOCOL
     Route: 042
     Dates: start: 20070518
  3. PREDNISOLONE [Suspect]
     Route: 065
     Dates: start: 20070523

REACTIONS (3)
  - CONVULSION [None]
  - GASTROENTERITIS [None]
  - GRAFT DYSFUNCTION [None]
